FAERS Safety Report 9247761 (Version 1)
Quarter: 2013Q1

REPORT INFORMATION
  Report Type: Spontaneous
  Country: US (occurrence: None)
  Receive Date: 20130305
  Receipt Date: 20130305
  Transmission Date: 20140127
  Serious: Yes (Other)
  Sender: FDA-Public Use
  Company Number: 163-21880-12062092

PATIENT
  Age: 69 Year
  Sex: Male

DRUGS (9)
  1. REVLIMID [Suspect]
     Indication: PLASMA CELL MYELOMA
     Dosage: 25 MG, 1 IN 1 D, PO
     Route: 048
     Dates: start: 200902
  2. VELCADE (BORTEZOMIB) [Concomitant]
  3. NORMAL SALINE (SODIUM CHLORIDE) [Concomitant]
  4. ALOXI (PALONOSETRON HYDROCHLORIDE) [Concomitant]
  5. AMLODIPINE (AMLODIPINE) (UNKNOWN) [Concomitant]
  6. FOLIC ACID (FOLIC ACID) (UNKNOWN) [Concomitant]
  7. ASPIRIN (ACETYLSALICYLIC ACID) (UNKNOWN) (ACETYLSALICYLIC ACID) [Concomitant]
  8. MULTIVITAMINS (MULTIVITAMINS) (UNKNOWN) [Concomitant]
  9. CYMBALTA (DULOXETINE HYDROCHLORIDE) (UNKNOWN) [Concomitant]

REACTIONS (3)
  - Treatment failure [None]
  - Plasma cell myeloma [None]
  - Platelet count decreased [None]
